FAERS Safety Report 5739434-1 (Version None)
Quarter: 2008Q2

REPORT INFORMATION
  Report Type: 
  Country: None (occurrence: None)
  Receive Date: 20080515
  Receipt Date: 20080503
  Transmission Date: 20081010
  Serious: Yes (Other)
  Sender: FDA-Public Use
  Company Number: BR-PFIZER INC-2008026904

PATIENT
  Sex: Male
  Weight: 72 kg

DRUGS (2)
  1. CHANTIX [Suspect]
     Indication: TOBACCO USER
     Route: 048
  2. LOSARTAN POTASSIUM [Concomitant]
     Route: 048

REACTIONS (2)
  - ABDOMINAL PAIN UPPER [None]
  - COLITIS [None]
